FAERS Safety Report 5588870-5 (Version None)
Quarter: 2008Q1

REPORT INFORMATION
  Report Type: 
  Country: None (occurrence: None)
  Receive Date: 20080111
  Receipt Date: 20080103
  Transmission Date: 20080703
  Serious: Yes (Other)
  Sender: FDA-Public Use
  Company Number: US-PFIZER INC-2008001731

PATIENT
  Sex: Female
  Weight: 90.7 kg

DRUGS (8)
  1. CHANTIX [Suspect]
     Indication: SMOKING CESSATION THERAPY
  2. SERAX [Concomitant]
  3. ESTROGEN NOS [Concomitant]
  4. VITAMINS [Concomitant]
  5. MINERALS NOS [Concomitant]
  6. FLOVENT [Concomitant]
  7. CHLORPHENIRAMINE MALEATE [Concomitant]
  8. BENADRYL [Concomitant]

REACTIONS (4)
  - BALANCE DISORDER [None]
  - CHEST DISCOMFORT [None]
  - DYSPHAGIA [None]
  - LIP SWELLING [None]
